FAERS Safety Report 4296423-4 (Version None)
Quarter: 2004Q1

REPORT INFORMATION
  Report Type: 
  Country: None (occurrence: None)
  Receive Date: 20040212
  Receipt Date: 20040127
  Transmission Date: 20041129
  Serious: Yes (Hospitalization)
  Sender: FDA-Public Use
  Company Number: A02200400296

PATIENT
  Age: 61 Year
  Sex: Male

DRUGS (3)
  1. STILNOX - (ZOLPIDEM) - TABLET - 10 MG [Suspect]
     Dosage: ORAL
     Route: 048
  2. SPASFON - (PHLOROGLUCINOL/TRIMETHYLPHLOROGLUCINOL) [Suspect]
     Dosage: 2 DF TID, ORAL
     Route: 048
  3. PREVISCAN - (FLUINDIONE) - TABLET - 20 MG [Suspect]
     Indication: THROMBOPHLEBITIS
     Dosage: ORAL
     Route: 048
     Dates: start: 20000315, end: 20000506

REACTIONS (1)
  - HAEMATURIA [None]
